FAERS Safety Report 7710890-2 (Version None)
Quarter: 2011Q3

REPORT INFORMATION
  Report Type: 
  Country: None (occurrence: None)
  Receive Date: 20110825
  Receipt Date: 20110816
  Transmission Date: 20111222
  Serious: Yes (Other)
  Sender: FDA-Public Use
  Company Number: FR-ASTRAZENECA-2011SE48818

PATIENT
  Age: 26 Year
  Sex: Female

DRUGS (9)
  1. IMIPENEM [Concomitant]
  2. VANCOMYCIN HCL [Concomitant]
  3. METHADONE HCL [Interacting]
     Route: 048
  4. LEVOFLOXACIN [Concomitant]
  5. ESOMEPRAZOLE MAGNESIUM [Suspect]
     Route: 048
  6. AMIKACIN [Concomitant]
  7. METHADONE HCL [Interacting]
     Route: 048
  8. VORICONAZOLE [Interacting]
     Indication: ASPERGILLOSIS
     Route: 042
  9. VORICONAZOLE [Interacting]
     Route: 042

REACTIONS (2)
  - EXTRASYSTOLES [None]
  - DRUG INTERACTION [None]
